FAERS Safety Report 7564253-3 (Version None)
Quarter: 2011Q2

REPORT INFORMATION
  Report Type: 
  Country: None (occurrence: None)
  Receive Date: 20110622
  Receipt Date: 20110609
  Transmission Date: 20111010
  Serious: Yes (Hospitalization, Other)
  Sender: FDA-Public Use
  Company Number: PHFR2011GB03217

PATIENT
  Sex: Male

DRUGS (2)
  1. CLOZAPINE [Suspect]
     Indication: SCHIZOPHRENIA
     Dosage: 200 MG, QD
     Route: 048
     Dates: start: 20100715
  2. CLOZAPINE [Suspect]
     Dosage: 200 MG/DAY
     Route: 048

REACTIONS (18)
  - HAEMATOCRIT DECREASED [None]
  - RESPIRATORY DISORDER [None]
  - LUNG CONSOLIDATION [None]
  - LIVER FUNCTION TEST ABNORMAL [None]
  - GAMMA-GLUTAMYLTRANSFERASE INCREASED [None]
  - NEUTROPHIL COUNT INCREASED [None]
  - BLOOD ALBUMIN DECREASED [None]
  - COUGH [None]
  - WEIGHT DECREASED [None]
  - PLEURAL FIBROSIS [None]
  - HIGH DENSITY LIPOPROTEIN ABNORMAL [None]
  - GLOBULINS INCREASED [None]
  - BLOOD ALKALINE PHOSPHATASE INCREASED [None]
  - ANAEMIA [None]
  - NEOPLASM MALIGNANT [None]
  - C-REACTIVE PROTEIN INCREASED [None]
  - CHEST X-RAY ABNORMAL [None]
  - WHITE BLOOD CELL COUNT INCREASED [None]
